FAERS Safety Report 6974530-2 (Version None)
Quarter: 2010Q3

REPORT INFORMATION
  Report Type: 
  Country: None (occurrence: None)
  Receive Date: 20100909
  Receipt Date: 20100830
  Transmission Date: 20110219
  Serious: Yes (Death)
  Sender: FDA-Public Use
  Company Number: IT-GENENTECH-306205

PATIENT

DRUGS (13)
  1. RITUXIMAB [Suspect]
     Indication: B-CELL LYMPHOMA RECURRENT
     Dosage: 375 MG/M2, UNK
     Route: 065
  2. RITUXIMAB [Suspect]
     Dosage: UNK
     Route: 065
  3. RITUXIMAB [Suspect]
     Dosage: UNK
     Route: 065
  4. DEXAMETHASONE [Suspect]
     Indication: PRODUCT USED FOR UNKNOWN INDICATION
     Dosage: UNK
     Route: 065
  5. CYTARABINE [Suspect]
     Indication: B-CELL LYMPHOMA RECURRENT
     Dosage: UNK
     Route: 065
  6. CYTARABINE [Suspect]
     Dosage: UNK
     Route: 065
  7. CISPLATIN [Suspect]
     Indication: B-CELL LYMPHOMA RECURRENT
     Dosage: UNK
     Route: 065
  8. ANTHRACYCLINE NOS [Suspect]
     Indication: B-CELL LYMPHOMA RECURRENT
     Dosage: UNK
     Route: 065
  9. CYCLOPHOSPHAMIDE [Suspect]
     Indication: B-CELL LYMPHOMA RECURRENT
     Dosage: UNK
     Route: 065
  10. MELPHALAN [Suspect]
     Indication: B-CELL LYMPHOMA RECURRENT
     Dosage: 180 MG/M2, UNK
     Route: 065
  11. MITOXANTRONE [Suspect]
     Indication: B-CELL LYMPHOMA RECURRENT
     Dosage: 60 MG/M2, UNK
     Route: 065
  12. VP 16 [Suspect]
     Indication: B-CELL LYMPHOMA RECURRENT
     Dosage: 2.4 G/M2, UNK
     Route: 065
  13. CARMUSTINE [Suspect]
     Indication: B-CELL LYMPHOMA RECURRENT
     Dosage: UNK
     Route: 065

REACTIONS (3)
  - INFECTION [None]
  - MYELODYSPLASTIC SYNDROME [None]
  - NEOPLASM [None]
